FAERS Safety Report 18578781 (Version 1)
Quarter: 2020Q4

REPORT INFORMATION
  Report Type: Spontaneous
  Country: IT (occurrence: IT)
  Receive Date: 20201204
  Receipt Date: 20201204
  Transmission Date: 20210114
  Serious: Yes (Other)
  Sender: FDA-Public Use
  Company Number: IT-ACCORD-209928

PATIENT
  Age: 6 Year
  Sex: Male
  Weight: 24 kg

DRUGS (8)
  1. CARBOPLATIN. [Suspect]
     Active Substance: CARBOPLATIN
     Indication: HEPATIC NEOPLASM
     Route: 042
     Dates: start: 20200320, end: 20200324
  2. HOLOXAN [Concomitant]
     Active Substance: IFOSFAMIDE
     Route: 042
  3. METHYLENE BLUE. [Concomitant]
     Active Substance: METHYLENE BLUE
     Route: 042
  4. ANTRA [Concomitant]
     Active Substance: OMEPRAZOLE
     Route: 042
  5. UROMITEXAN [Concomitant]
     Active Substance: MESNA
     Route: 042
  6. DECADRON [Concomitant]
     Active Substance: DEXAMETHASONE
     Route: 042
  7. VEPESID [Suspect]
     Active Substance: ETOPOSIDE
     Indication: HEPATIC NEOPLASM
     Route: 042
     Dates: start: 20200320, end: 20200324
  8. ZOFRAN [Concomitant]
     Active Substance: ONDANSETRON HYDROCHLORIDE
     Route: 042

REACTIONS (8)
  - Headache [Recovered/Resolved]
  - Asthenia [Recovering/Resolving]
  - Somnolence [Recovering/Resolving]
  - Pyrexia [Recovered/Resolved]
  - Nausea [Recovering/Resolving]
  - Bone marrow failure [Recovering/Resolving]
  - Off label use [Unknown]
  - Hypotonia [Recovering/Resolving]

NARRATIVE: CASE EVENT DATE: 20200321
